FAERS Safety Report 4609333-7 (Version None)
Quarter: 2005Q1

REPORT INFORMATION
  Report Type: 
  Country: None (occurrence: None)
  Receive Date: 20050314
  Receipt Date: 20050304
  Transmission Date: 20050727
  Serious: Yes (Hospitalization, Disabling)
  Sender: FDA-Public Use
  Company Number: 2005-02-1013

PATIENT
  Age: 53 Year
  Sex: Male
  Weight: 107 kg

DRUGS (5)
  1. PEG-INTERFERON ALFA-2B INJECTABLE POWDER [Suspect]
     Indication: HEPATITIS C
     Dosage: 150 MCG QWK SUBCUTANEOUS
     Route: 058
     Dates: start: 20041128, end: 20050211
  2. RIBAVIRIN [Suspect]
     Indication: HEPATITIS C
     Dosage: 1200 MG OD ORAL
     Route: 048
     Dates: start: 20041128, end: 20050211
  3. METFORMIN HCL [Concomitant]
  4. GLYBURIDE [Concomitant]
  5. IBUPROFEN [Concomitant]

REACTIONS (7)
  - BLINDNESS UNILATERAL [None]
  - CONJUNCTIVAL HAEMORRHAGE [None]
  - CONJUNCTIVAL OEDEMA [None]
  - EYE IRRITATION [None]
  - PANOPHTHALMITIS [None]
  - PHOTOPHOBIA [None]
  - VISUAL DISTURBANCE [None]
